FAERS Safety Report 5708402-8 (Version None)
Quarter: 2008Q2

REPORT INFORMATION
  Report Type: 
  Country: None (occurrence: None)
  Receive Date: 20080417
  Receipt Date: 20080409
  Transmission Date: 20081010
  Serious: Yes (Hospitalization)
  Sender: FDA-Public Use
  Company Number: US-ELI_LILLY_AND_COMPANY-US200804002312

PATIENT
  Sex: Male

DRUGS (1)
  1. HUMATROPE [Suspect]
     Dosage: UNK, UNKNOWN
     Dates: start: 20040101

REACTIONS (1)
  - INTESTINAL OBSTRUCTION [None]
